FAERS Safety Report 11512151 (Version 2)
Quarter: 2015Q4

REPORT INFORMATION
  Report Type: Report from Study
  Country: US (occurrence: US)
  Receive Date: 20150916
  Receipt Date: 20151010
  Transmission Date: 20160304
  Serious: No
  Sender: FDA-Public Use
  Company Number: PHEH2015US017978

PATIENT
  Age: 33 Year
  Sex: Male
  Weight: 82.54 kg

DRUGS (1)
  1. GILENYA [Suspect]
     Active Substance: FINGOLIMOD HYDROCHLORIDE
     Indication: MULTIPLE SCLEROSIS
     Dosage: 0.5 MG, QD
     Route: 048
     Dates: start: 20150912

REACTIONS (7)
  - Nasopharyngitis [Unknown]
  - Feeling cold [Recovered/Resolved]
  - Respiratory tract congestion [Unknown]
  - Oropharyngeal pain [Unknown]
  - Fatigue [Recovered/Resolved]
  - Sputum discoloured [Unknown]
  - Influenza [Unknown]

NARRATIVE: CASE EVENT DATE: 20150912
